FAERS Safety Report 4430622-3 (Version None)
Quarter: 2004Q3

REPORT INFORMATION
  Report Type: 
  Country: None (occurrence: None)
  Receive Date: 20040819
  Receipt Date: 20040819
  Transmission Date: 20050211
  Serious: Yes (Hospitalization)
  Sender: FDA-Public Use
  Company Number: None

PATIENT
  Sex: Male
  Weight: 87.7257 kg

DRUGS (7)
  1. NAPROXEN [Suspect]
     Indication: OSTEOARTHRITIS
     Dosage: 500 MG BID/ PER PATIENT 3 YRS
  2. ASPIRIN [Suspect]
     Indication: CARDIAC DISORDER
     Dosage: PER PATIENT 3 YRS
  3. VICODIN [Concomitant]
  4. RANITIDINE [Concomitant]
  5. SIMVASTATIN [Concomitant]
  6. ETODOLAC [Concomitant]
  7. OXYBUTYNIN CHLORIDE [Concomitant]

REACTIONS (1)
  - GASTROINTESTINAL HAEMORRHAGE [None]
